FAERS Safety Report 8962641 (Version 2)
Quarter: 2013Q1

REPORT INFORMATION
  Report Type: Spontaneous
  Country: US (occurrence: US)
  Receive Date: 20121213
  Receipt Date: 20130305
  Transmission Date: 20140127
  Serious: Yes (Other)
  Sender: FDA-Public Use
  Company Number: US-VERTEX PHARMACEUTICALS INC.-2012-026038

PATIENT
  Sex: Female

DRUGS (20)
  1. INCIVEK [Suspect]
     Indication: HEPATITIS C
     Dosage: UNK
     Route: 048
     Dates: start: 20120421
  2. RIBAVIRIN [Suspect]
     Indication: HEPATITIS C
     Dosage: UNK
     Dates: start: 20120421
  3. RIBAVIRIN [Suspect]
     Dosage: 600 MG, QD
     Dates: start: 20120620
  4. PEGASYS [Suspect]
     Indication: HEPATITIS C
     Dosage: UNK
     Dates: start: 20120421
  5. PEGASYS [Suspect]
     Dosage: 90 ?G, UNK
     Dates: start: 20120620
  6. PEGASYS [Suspect]
     Dosage: 180 ?G, UNK
     Dates: start: 20121031
  7. TRUVADA [Concomitant]
     Indication: HIV INFECTION
     Dosage: 1 DF, QD
  8. TRUVADA [Concomitant]
     Dosage: 1 DF, MON, WED AND FRI
  9. NORVIR [Concomitant]
     Indication: HIV INFECTION
     Dosage: 1 DF, QD
  10. FOSAMAX [Concomitant]
     Dosage: 4 DF, UNK
     Route: 048
  11. AMITRIPTYLINE [Concomitant]
     Indication: INSOMNIA
     Dosage: 1 DF, UNK
     Route: 048
  12. REYATAZ [Concomitant]
     Indication: HIV INFECTION
     Dosage: 1 DF, UNK
     Route: 048
  13. DIAZEPAM [Concomitant]
     Indication: ANXIETY
     Dosage: 1 DF, UNK
     Route: 048
  14. LEXAPRO [Concomitant]
     Indication: DEPRESSION
     Dosage: 1 DF, UNK
     Route: 048
  15. FAMOTIDINE [Concomitant]
     Indication: GASTROOESOPHAGEAL REFLUX DISEASE
     Dosage: 1 DF, UNK
     Route: 048
  16. LEVOTHYROXINE [Concomitant]
     Indication: HYPOTHYROIDISM
     Dosage: 2 DF, UNK
     Route: 048
  17. NAPROSYN [Concomitant]
     Indication: PAIN
     Dosage: 1 DF, PRN
  18. MULTIVITAMIN [Concomitant]
  19. PEPCID [Concomitant]
  20. VALACYCLOVIR HCL PHARMA PAC [Concomitant]
     Dosage: 1 DF, QD
     Route: 048

REACTIONS (4)
  - Anaemia [Unknown]
  - Off label use [Unknown]
  - Blood creatinine increased [Unknown]
  - Platelet count decreased [Unknown]
